FAERS Safety Report 20193101 (Version 1)
Quarter: 2021Q4

REPORT INFORMATION
  Report Type: Spontaneous
  Country: US (occurrence: None)
  Receive Date: 20211215
  Receipt Date: 20211215
  Transmission Date: 20220303
  Serious: Yes (Death)
  Sender: FDA-Public Use
  Company Number: None

PATIENT
  Age: 98 Year
  Sex: Male

DRUGS (1)
  1. DEVICE [Suspect]
     Active Substance: DEVICE
     Indication: Osteoarthritis
     Dosage: OTHER FREQUENCY : ONCE EVERY 6 MONTHS AS DIRECTED?
     Route: 014
     Dates: start: 202106

REACTIONS (1)
  - Death [None]
